FAERS Safety Report 6623828-6 (Version None)
Quarter: 2010Q1

REPORT INFORMATION
  Report Type: 
  Country: None (occurrence: None)
  Receive Date: 20100310
  Receipt Date: 20100228
  Transmission Date: 20100710
  Serious: Yes (Other)
  Sender: FDA-Public Use
  Company Number: PHHY2010ES08875

PATIENT
  Age: 50 Year
  Sex: Male

DRUGS (8)
  1. GLEEVEC [Suspect]
     Indication: CHRONIC MYELOID LEUKAEMIA
     Dosage: 400 MG, QD
     Route: 048
     Dates: start: 20080101, end: 20090724
  2. GLEEVEC [Suspect]
     Dosage: 400 MG, QD
     Route: 048
     Dates: start: 20090802, end: 20091026
  3. TASIGNA [Suspect]
     Indication: CHRONIC MYELOID LEUKAEMIA
     Dosage: UNK
     Dates: start: 20090725, end: 20090801
  4. AAS [Concomitant]
     Dosage: 10 MG/DAY
  5. VALSARTAN [Concomitant]
     Dosage: 160 MG/DAY
  6. ZOFRAN [Concomitant]
     Dosage: 4 MG/DAY
  7. SUTRIL [Concomitant]
     Dosage: 10 MG/DAY
  8. BOI K [Concomitant]
     Dosage: 1 TABLET DAILY

REACTIONS (1)
  - OPTIC NEURITIS [None]
